FAERS Safety Report 5838848-9 (Version None)
Quarter: 2008Q3

REPORT INFORMATION
  Report Type: 
  Country: None (occurrence: None)
  Receive Date: 20080808
  Receipt Date: 20080604
  Transmission Date: 20090109
  Serious: No
  Sender: FDA-Public Use
  Company Number: US-ABBOTT-08P-163-0455248-00

PATIENT
  Sex: Female
  Weight: 53.118 kg

DRUGS (4)
  1. KALETRA [Suspect]
     Indication: PROPHYLAXIS AGAINST HIV INFECTION
     Route: 048
     Dates: start: 20080401
  2. KALETRA [Suspect]
  3. TRUVADA [Suspect]
     Indication: PROPHYLAXIS AGAINST HIV INFECTION
     Route: 048
     Dates: start: 20080401
  4. TRUVADA [Suspect]
     Route: 048

REACTIONS (2)
  - NAUSEA [None]
  - URTICARIA [None]
